FAERS Safety Report 20520547 (Version 1)
Quarter: 2022Q1

REPORT INFORMATION
  Report Type: Spontaneous
  Country: US (occurrence: US)
  Receive Date: 20220225
  Receipt Date: 20220225
  Transmission Date: 20220424
  Serious: No
  Sender: FDA-Public Use
  Company Number: US-PFIZER INC-2021672876

PATIENT
  Age: 12 Year
  Sex: Female
  Weight: 56.7 kg

DRUGS (2)
  1. GENOTROPIN [Suspect]
     Active Substance: SOMATROPIN
     Indication: Growth hormone deficiency
     Dosage: 2 MG, DAILY [INTO FATTY TISSUE SHE IS GUESSING: ROTATES STOMACH, THIGHS OR BUTTOCKS]
     Route: 058
     Dates: start: 20210524
  2. GENOTROPIN [Suspect]
     Active Substance: SOMATROPIN
     Dosage: 2.4 MG, DAILY
     Dates: start: 20210524

REACTIONS (4)
  - Poor quality device used [Unknown]
  - Incorrect dose administered by device [Unknown]
  - Needle issue [Unknown]
  - Anxiety [Unknown]

NARRATIVE: CASE EVENT DATE: 20210601
